FAERS Safety Report 16641022 (Version 1)
Quarter: 2019Q3

REPORT INFORMATION
  Report Type: Spontaneous
  Country: US (occurrence: US)
  Receive Date: 20190729
  Receipt Date: 20190729
  Transmission Date: 20191004
  Serious: No
  Sender: FDA-Public Use
  Company Number: US-JNJFOC-20190730215

PATIENT
  Age: 66 Year
  Sex: Female
  Weight: 77.18 kg

DRUGS (1)
  1. TYLENOL REGULAR STRENGTH [Suspect]
     Active Substance: ACETAMINOPHEN
     Indication: ANALGESIC THERAPY
     Route: 048
     Dates: start: 201907, end: 201907

REACTIONS (1)
  - Product use complaint [Recovered/Resolved]

NARRATIVE: CASE EVENT DATE: 201907
